FAERS Safety Report 6993994-1 (Version None)
Quarter: 2010Q3

REPORT INFORMATION
  Report Type: 
  Country: None (occurrence: None)
  Receive Date: 20100917
  Receipt Date: 20100720
  Transmission Date: 20110219
  Serious: Yes (Hospitalization)
  Sender: FDA-Public Use
  Company Number: US-ASTRAZENECA-2010SE33725

PATIENT
  Age: 15783 Day
  Sex: Female
  Weight: 90.7 kg

DRUGS (8)
  1. SEROQUEL XR [Suspect]
     Indication: BORDERLINE PERSONALITY DISORDER
     Route: 048
     Dates: start: 20090401, end: 20100601
  2. SEROQUEL XR [Suspect]
     Indication: DEPRESSION
     Route: 048
     Dates: start: 20090401, end: 20100601
  3. SEROQUEL XR [Suspect]
     Route: 048
     Dates: start: 20100601, end: 20100708
  4. SEROQUEL XR [Suspect]
     Route: 048
     Dates: start: 20100601, end: 20100708
  5. SEROQUEL XR [Suspect]
     Dosage: 100 MGS IN AM, 100 MGS IN NOON AND 600 MGS AT NIGHT
     Route: 048
     Dates: start: 20100708
  6. SEROQUEL XR [Suspect]
     Dosage: 100 MGS IN AM, 100 MGS IN NOON AND 600 MGS AT NIGHT
     Route: 048
     Dates: start: 20100708
  7. CELEXA [Concomitant]
  8. ATIVAN [Concomitant]

REACTIONS (2)
  - INCORRECT DOSE ADMINISTERED [None]
  - SUICIDE ATTEMPT [None]
